FAERS Safety Report 5134257-9 (Version None)
Quarter: 2006Q4

REPORT INFORMATION
  Report Type: 
  Country: None (occurrence: None)
  Receive Date: 20061019
  Receipt Date: 20061010
  Transmission Date: 20070319
  Serious: No
  Sender: FDA-Public Use
  Company Number: FR200610001972

PATIENT
  Age: 36 Year
  Sex: Male

DRUGS (1)
  1. ZYPREXA [Suspect]
     Indication: SCHIZOPHRENIA
     Dosage: 20 M G, DAILY (1/D), ORAL
     Route: 048
     Dates: start: 19990101

REACTIONS (2)
  - BLOOD BILIRUBIN INCREASED [None]
  - PLATELET COUNT DECREASED [None]
